FAERS Safety Report 6680122-5 (Version None)
Quarter: 2010Q2

REPORT INFORMATION
  Report Type: 
  Country: None (occurrence: None)
  Receive Date: 20100409
  Receipt Date: 20100326
  Transmission Date: 20101027
  Serious: Yes (Other)
  Sender: FDA-Public Use
  Company Number: 1000012273

PATIENT
  Age: 33 Year
  Sex: Female
  Weight: 51 kg

DRUGS (10)
  1. ESCITALOPRAM [Suspect]
     Indication: ANXIETY
     Dosage: (5 MG), ORAL
     Route: 048
     Dates: start: 20081125
  2. ESCITALOPRAM [Suspect]
     Indication: DEPRESSION
     Dosage: (5 MG), ORAL
     Route: 048
     Dates: start: 20081125
  3. ESCITALOPRAM [Suspect]
     Indication: ANXIETY
     Dosage: 20 MG (20 MG,1 IN 1 D), ORAL
     Route: 048
     Dates: start: 20090706, end: 20100212
  4. ESCITALOPRAM [Suspect]
     Indication: DEPRESSION
     Dosage: 20 MG (20 MG,1 IN 1 D), ORAL
     Route: 048
     Dates: start: 20090706, end: 20100212
  5. ESCITALOPRAM [Suspect]
     Indication: ANXIETY
     Dosage: 10 MG, ORAL
     Route: 048
     Dates: start: 20100302, end: 20100312
  6. ESCITALOPRAM [Suspect]
     Indication: DEPRESSION
     Dosage: 10 MG, ORAL
     Route: 048
     Dates: start: 20100302, end: 20100312
  7. TILCOTIL [Concomitant]
  8. LAMOTRIGINE [Concomitant]
  9. OXAPAX [Concomitant]
  10. LACTULOSE [Concomitant]

REACTIONS (4)
  - EPISTAXIS [None]
  - HYDRONEPHROSIS [None]
  - RENAL IMPAIRMENT [None]
  - THROMBOCYTOPENIA [None]
